FAERS Safety Report 23873179 (Version 2)
Quarter: 2024Q2

REPORT INFORMATION
  Report Type: Spontaneous
  Country: ES (occurrence: ES)
  Receive Date: 20240520
  Receipt Date: 20240605
  Transmission Date: 20240716
  Serious: Yes (Hospitalization, Other)
  Sender: FDA-Public Use
  Company Number: ES-Accord-424805

PATIENT
  Age: 53 Year
  Sex: Female
  Weight: 57.4 kg

DRUGS (18)
  1. CARBOPLATIN [Suspect]
     Active Substance: CARBOPLATIN
     Indication: Non-small cell lung cancer
     Dosage: 5 AUC, 1Q3W
     Route: 042
     Dates: start: 20230410, end: 20240410
  2. PEMETREXED [Suspect]
     Active Substance: PEMETREXED
     Indication: Non-small cell lung cancer
     Dosage: 1Q3W
     Route: 042
     Dates: start: 20230410, end: 20230410
  3. PEMBROLIZUMAB [Concomitant]
     Active Substance: PEMBROLIZUMAB
     Indication: Non-small cell lung cancer
     Dosage: 1Q3W
     Route: 042
     Dates: start: 20230410, end: 20230410
  4. CODEINE [Concomitant]
     Active Substance: CODEINE
     Dates: start: 20230417, end: 20231005
  5. PEITEL [Concomitant]
     Dates: start: 20230417, end: 20230509
  6. HYDROXYZINE [Concomitant]
     Active Substance: HYDROXYZINE HYDROCHLORIDE
     Dates: start: 20230417, end: 20230509
  7. MOVICOL [Concomitant]
     Active Substance: POLYETHYLENE GLYCOL 3350\POTASSIUM CHLORIDE\SODIUM BICARBONATE\SODIUM CHLORIDE
     Dates: start: 20230417, end: 20231005
  8. LEVOFLOXACIN [Concomitant]
     Active Substance: LEVOFLOXACIN
     Dates: start: 20230512, end: 20230519
  9. AUGMENTIN [Concomitant]
     Active Substance: AMOXICILLIN\CLAVULANATE POTASSIUM
     Dates: start: 20230419, end: 20230425
  10. PREDNISONE [Concomitant]
     Active Substance: PREDNISONE
     Dates: start: 20230503, end: 20230604
  11. METHYLPREDNISOLONE [Concomitant]
     Active Substance: METHYLPREDNISOLONE
     Dates: start: 20230424, end: 20230424
  12. ONDANSETRON [Concomitant]
     Active Substance: ONDANSETRON
     Dates: start: 20230509, end: 20230509
  13. METOCLOPRAMIDE [Concomitant]
     Active Substance: METOCLOPRAMIDE
     Dates: start: 20230410, end: 20231005
  14. FAMOTIDINE [Concomitant]
     Active Substance: FAMOTIDINE
     Dates: start: 20230503, end: 20231005
  15. FOLIC ACID [Concomitant]
     Active Substance: FOLIC ACID
     Dates: start: 20230412, end: 20231005
  16. PEMBROLIZUMAB [Concomitant]
     Active Substance: PEMBROLIZUMAB
     Indication: Non-small cell lung cancer
     Dosage: 1Q3W
     Route: 042
     Dates: start: 20230509
  17. CARBOPLATIN [Suspect]
     Active Substance: CARBOPLATIN
     Indication: Non-small cell lung cancer
     Dosage: 5 AUC, 1Q3W
     Route: 042
     Dates: start: 20230509
  18. PEMETREXED [Suspect]
     Active Substance: PEMETREXED
     Indication: Non-small cell lung cancer
     Dosage: 1Q3W
     Route: 042
     Dates: start: 20230509

REACTIONS (1)
  - Pneumonia [Recovered/Resolved]

NARRATIVE: CASE EVENT DATE: 20230513
